FAERS Safety Report 24717857 (Version 1)
Quarter: 2024Q4

REPORT INFORMATION
  Report Type: Spontaneous
  Country: SG (occurrence: SG)
  Receive Date: 20241210
  Receipt Date: 20241210
  Transmission Date: 20250114
  Serious: Yes (Other)
  Sender: AMGEN
  Company Number: SG-AMGEN-SGPSP2024238719

PATIENT
  Age: 66 Year
  Sex: Female

DRUGS (1)
  1. ADALIMUMAB [Suspect]
     Active Substance: ADALIMUMAB
     Indication: Product used for unknown indication
     Dosage: UNK
     Route: 065

REACTIONS (2)
  - Dermatitis psoriasiform [Unknown]
  - Dermatitis [Unknown]

NARRATIVE: CASE EVENT DATE: 20230116
